FAERS Safety Report 6140748-4 (Version None)
Quarter: 2009Q2

REPORT INFORMATION
  Report Type: 
  Country: None (occurrence: None)
  Receive Date: 20090402
  Receipt Date: 20090325
  Transmission Date: 20091009
  Serious: Yes (Hospitalization)
  Sender: FDA-Public Use
  Company Number: PHHO2009FR01648

PATIENT
  Sex: Female

DRUGS (2)
  1. ERL 080A ERL+TAB [Suspect]
     Indication: RENAL TRANSPLANT
     Dosage: 1440 MG
     Route: 048
     Dates: start: 20080410, end: 20081010
  2. NEORAL [Suspect]
     Indication: RENAL TRANSPLANT

REACTIONS (14)
  - ANAEMIA [None]
  - CYTOMEGALOVIRUS INFECTION [None]
  - ENTEROBACTER INFECTION [None]
  - ESCHERICHIA BACTERAEMIA [None]
  - INFECTIVE THROMBOSIS [None]
  - NEPHROPATHY TOXIC [None]
  - PHLEBITIS [None]
  - PYELONEPHRITIS [None]
  - RENAL FAILURE ACUTE [None]
  - SKIN NECROSIS [None]
  - THERAPEUTIC AGENT TOXICITY [None]
  - THROMBECTOMY [None]
  - VENOUS LIGATION [None]
  - VENOUS THROMBOSIS [None]
